FAERS Safety Report 16958292 (Version 6)
Quarter: 2020Q3

REPORT INFORMATION
  Report Type: Report from Study
  Country: CO (occurrence: CO)
  Receive Date: 20191024
  Receipt Date: 20200708
  Transmission Date: 20201102
  Serious: Yes (Other)
  Sender: FDA-Public Use
  Company Number: CO-BAYER-2019-161453

PATIENT
  Age: 52 Year
  Sex: Female

DRUGS (21)
  1. ADEMPAS [Suspect]
     Active Substance: RIOCIGUAT
     Dosage: 1 MG
     Dates: start: 20190610
  2. VENTAVIS [Suspect]
     Active Substance: ILOPROST
     Indication: PULMONARY ARTERIAL HYPERTENSION
  3. VENTAVIS [Suspect]
     Active Substance: ILOPROST
     Indication: PULMONARY ARTERIAL HYPERTENSION
  4. ADEMPAS [Suspect]
     Active Substance: RIOCIGUAT
     Dosage: 2 MG, UNK
     Dates: start: 20190527
  5. ADEMPAS [Suspect]
     Active Substance: RIOCIGUAT
     Dosage: 0.5 MG
     Dates: start: 20190527
  6. VENTAVIS [Suspect]
     Active Substance: ILOPROST
     Indication: PULMONARY ARTERIAL HYPERTENSION
     Dosage: 6 NEBULIZATIONS PER DAY
     Dates: start: 20090220
  7. LYRICA [Concomitant]
     Active Substance: PREGABALIN
     Indication: PAIN
     Dosage: 175 MG, QD
  8. PREDNISOLONE. [Concomitant]
     Active Substance: PREDNISOLONE
     Indication: SYSTEMIC LUPUS ERYTHEMATOSUS
     Dosage: UNK
  9. MACITENTAN [Concomitant]
     Active Substance: MACITENTAN
     Indication: PULMONARY ARTERIAL HYPERTENSION
     Dosage: 125 MG, QD
  10. ADEMPAS [Suspect]
     Active Substance: RIOCIGUAT
     Dosage: 2 MG, UNK
     Dates: start: 20200318
  11. ADEMPAS [Suspect]
     Active Substance: RIOCIGUAT
     Dosage: 1.5 MG
     Dates: start: 20190623
  12. ADEMPAS [Suspect]
     Active Substance: RIOCIGUAT
     Dosage: 2 MG
     Dates: start: 20190707
  13. LOSARTAN. [Concomitant]
     Active Substance: LOSARTAN
     Indication: HYPERTENSION
     Dosage: 50 MG 1 TABLET EVERY 12 HOURS
  14. CENTRUM [MINERALS NOS;VITAMINS NOS] [Concomitant]
     Dosage: UNK
  15. ADEMPAS [Suspect]
     Active Substance: RIOCIGUAT
     Dosage: 1.5 MG, TID
  16. CHLOROQUINE. [Concomitant]
     Active Substance: CHLOROQUINE
     Dosage: 200 MG, QD
  17. CARDIOASPIRIN [Concomitant]
     Active Substance: ASPIRIN
     Dosage: 100 MG, QD
  18. ADEMPAS [Suspect]
     Active Substance: RIOCIGUAT
     Dosage: 1.5 MG, UNK
     Dates: start: 20191101
  19. MULTIVITAMINS [VITAMINS NOS] [Concomitant]
     Active Substance: VITAMINS
     Dosage: UNK
  20. ADEMPAS [Suspect]
     Active Substance: RIOCIGUAT
     Dosage: 1 MG, Q8HR
     Route: 048
     Dates: start: 20190527
  21. ZOLPIDEM [Concomitant]
     Active Substance: ZOLPIDEM TARTRATE
     Indication: SLEEP DISORDER
     Dosage: UNK

REACTIONS (13)
  - Influenza [Unknown]
  - Dyspnoea [Recovered/Resolved]
  - Pulmonary arterial pressure decreased [Not Recovered/Not Resolved]
  - Drug level decreased [None]
  - Pyrexia [Not Recovered/Not Resolved]
  - Nasal congestion [Unknown]
  - Incorrect dosage administered [None]
  - Pain in extremity [Not Recovered/Not Resolved]
  - Chills [Not Recovered/Not Resolved]
  - Choking [Unknown]
  - Incorrect product administration duration [None]
  - Off label use [None]
  - Arthralgia [Not Recovered/Not Resolved]

NARRATIVE: CASE EVENT DATE: 2019
